FAERS Safety Report 25832744 (Version 1)
Quarter: 2025Q3

REPORT INFORMATION
  Report Type: Spontaneous
  Country: US (occurrence: US)
  Receive Date: 20250922
  Receipt Date: 20250922
  Transmission Date: 20251020
  Serious: No
  Sender: BOEHRINGER INGELHEIM
  Company Number: US-BoehringerIngelheim-2025-BI-096841

PATIENT
  Age: 75 Year
  Sex: Male

DRUGS (1)
  1. JARDIANCE [Suspect]
     Active Substance: EMPAGLIFLOZIN
     Indication: Product used for unknown indication
     Dates: start: 202501, end: 202509

REACTIONS (4)
  - Penile pain [Unknown]
  - Back pain [Unknown]
  - Dysuria [Unknown]
  - Rash [Unknown]

NARRATIVE: CASE EVENT DATE: 20250901
